FAERS Safety Report 6192526-8 (Version None)
Quarter: 2009Q2

REPORT INFORMATION
  Report Type: 
  Country: None (occurrence: None)
  Receive Date: 20090518
  Receipt Date: 20090511
  Transmission Date: 20091009
  Serious: Yes (Other)
  Sender: FDA-Public Use
  Company Number: PHHY2009JP16024

PATIENT
  Age: 65 Year
  Sex: Female

DRUGS (5)
  1. TEGRETOL [Suspect]
     Indication: EPILEPSY
     Dosage: 200 MG/DAY
     Route: 048
     Dates: start: 20090101, end: 20090307
  2. NATEGLINIDE [Concomitant]
     Route: 048
  3. INSULIN [Concomitant]
     Route: 058
  4. PURSENNID                               /SCH/ [Concomitant]
     Route: 048
  5. DAI-KENCHU-TO [Concomitant]
     Route: 048

REACTIONS (6)
  - ALOPECIA [None]
  - ANGIOEDEMA [None]
  - DYSGEUSIA [None]
  - NAUSEA [None]
  - PHARYNGEAL OEDEMA [None]
  - VOMITING [None]
